FAERS Safety Report 25334604 (Version 3)
Quarter: 2025Q3

REPORT INFORMATION
  Report Type: Report from Study
  Country: US (occurrence: US)
  Receive Date: 20250520
  Receipt Date: 20250821
  Transmission Date: 20251020
  Serious: Yes (Other)
  Sender: ABBVIE
  Company Number: US-ABBVIE-6189631

PATIENT
  Age: 65 Year
  Sex: Female

DRUGS (1)
  1. HUMIRA [Suspect]
     Active Substance: ADALIMUMAB
     Indication: Product used for unknown indication
     Route: 058
     Dates: start: 20220505

REACTIONS (13)
  - Cataract [Unknown]
  - Peripheral vascular disorder [Unknown]
  - Fatigue [Unknown]
  - Injection site swelling [Recovered/Resolved]
  - Pain in extremity [Unknown]
  - Sleep apnoea syndrome [Unknown]
  - Injection site bruising [Unknown]
  - Joint swelling [Unknown]
  - Spider vein [Unknown]
  - Full blood count decreased [Unknown]
  - Nervous system disorder [Unknown]
  - Intraocular pressure increased [Recovered/Resolved]
  - Keratomileusis [Unknown]

NARRATIVE: CASE EVENT DATE: 20240101
